FAERS Safety Report 17642073 (Version 2)
Quarter: 2020Q2

REPORT INFORMATION
  Report Type: Report from Study
  Country: CA (occurrence: CA)
  Receive Date: 20200408
  Receipt Date: 20200511
  Transmission Date: 20200713
  Serious: Yes (Other)
  Sender: FDA-Public Use
  Company Number: CA-TAIHO ONCOLOGY  INC-EU-2020-01145

PATIENT
  Age: 73 Year
  Sex: Female
  Weight: 68.7 kg

DRUGS (1)
  1. LONSURF [Suspect]
     Active Substance: TIPIRACIL HYDROCHLORIDE\TRIFLURIDINE
     Indication: COLORECTAL CANCER METASTATIC
     Dosage: CYCLE 1-3
     Route: 048
     Dates: start: 20191216, end: 20200225

REACTIONS (1)
  - Cardiac pacemaker insertion [Unknown]

NARRATIVE: CASE EVENT DATE: 20200226
